FAERS Safety Report 17025144 (Version 1)
Quarter: 2019Q4

REPORT INFORMATION
  Report Type: Spontaneous
  Country: US (occurrence: US)
  Receive Date: 20191008
  Receipt Date: 20191008
  Transmission Date: 20200122
  Serious: Yes (Hospitalization)
  Sender: FDA-Public Use
  Company Number: None

PATIENT
  Age: 68 Year
  Sex: Male
  Weight: 105 kg

DRUGS (2)
  1. ASPIRIN. [Suspect]
     Active Substance: ASPIRIN
     Indication: CORONARY ARTERIAL STENT INSERTION
     Route: 048
     Dates: start: 20190531, end: 20190715
  2. CLOPIDOGREL [Suspect]
     Active Substance: CLOPIDOGREL BISULFATE
     Indication: CORONARY ARTERIAL STENT INSERTION
     Dates: start: 20190531

REACTIONS (3)
  - Upper gastrointestinal haemorrhage [None]
  - Portal hypertensive gastropathy [None]
  - Anaemia [None]

NARRATIVE: CASE EVENT DATE: 20190531
